FAERS Safety Report 15169793 (Version 1)
Quarter: 2018Q3

REPORT INFORMATION
  Report Type: Spontaneous
  Country: US (occurrence: US)
  Receive Date: 20180718
  Receipt Date: 20180718
  Transmission Date: 20181010
  Serious: Yes (Death)
  Sender: FDA-Public Use
  Company Number: None

PATIENT
  Age: 46 Year
  Sex: Male
  Weight: 108 kg

DRUGS (1)
  1. KRATOM [Suspect]
     Active Substance: MITRAGYNINE\HERBALS
     Indication: PAIN
     Route: 048
     Dates: start: 20180203, end: 20180717

REACTIONS (1)
  - Death [None]

NARRATIVE: CASE EVENT DATE: 20180203
